FAERS Safety Report 17136295 (Version 1)
Quarter: 2019Q4

REPORT INFORMATION
  Report Type: Spontaneous
  Country: CN (occurrence: CN)
  Receive Date: 20191210
  Receipt Date: 20191210
  Transmission Date: 20200122
  Serious: Yes (Life-Threatening)
  Sender: FDA-Public Use
  Company Number: CN-ASTRAZENECA-2019SF76241

PATIENT
  Age: 16113 Day
  Sex: Male
  Weight: 65 kg

DRUGS (4)
  1. BAYASPIRIN [Suspect]
     Active Substance: ASPIRIN
     Indication: ANTIPLATELET THERAPY
     Route: 048
     Dates: start: 20191121, end: 20191123
  2. LOW-MOLECULAR-WEIGHT HEPARIN CALCIUM INJECTION [Suspect]
     Active Substance: HEPARIN CALCIUM
     Indication: THROMBOSIS
     Route: 058
     Dates: start: 20191121, end: 20191123
  3. ACERTIL [Concomitant]
     Active Substance: PERINDOPRIL ARGININE
     Indication: BLOOD PRESSURE INCREASED
     Route: 048
     Dates: start: 20191121, end: 20191128
  4. BRILINTA [Suspect]
     Active Substance: TICAGRELOR
     Indication: ANTIPLATELET THERAPY
     Route: 048
     Dates: start: 20191121, end: 20191128

REACTIONS (1)
  - Thrombocytopenia [Recovering/Resolving]

NARRATIVE: CASE EVENT DATE: 20191122
